FAERS Safety Report 19093011 (Version 2)
Quarter: 2021Q3

REPORT INFORMATION
  Report Type: Spontaneous
  Country: JP (occurrence: JP)
  Receive Date: 20210405
  Receipt Date: 20210712
  Transmission Date: 20211014
  Serious: Yes (Other)
  Sender: FDA-Public Use
  Company Number: JP-BRISTOL-MYERS SQUIBB COMPANY-BMS-2021-032640

PATIENT
  Sex: Male

DRUGS (1)
  1. OPDIVO [Suspect]
     Active Substance: NIVOLUMAB
     Indication: OESOPHAGEAL CARCINOMA
     Dosage: UNK
     Route: 041
     Dates: start: 202010

REACTIONS (5)
  - Pneumonia [Recovered/Resolved]
  - Thyroid disorder [Unknown]
  - Pyrexia [Unknown]
  - Varicella [Recovered/Resolved]
  - Autoimmune thyroiditis [Unknown]
